FAERS Safety Report 7176061-6 (Version None)
Quarter: 2010Q4

REPORT INFORMATION
  Report Type: 
  Country: None (occurrence: None)
  Receive Date: 20101215
  Receipt Date: 20101215
  Transmission Date: 20110411
  Serious: Yes (Life-Threatening)
  Sender: FDA-Public Use
  Company Number: None

PATIENT
  Age: 44 Year
  Sex: Male
  Weight: 73.9363 kg

DRUGS (2)
  1. REMICADE [Suspect]
     Indication: PSORIATIC ARTHROPATHY
     Dosage: 400 MG Q 2 WEEKS (2 INFUSIONS) IV
     Route: 042
     Dates: start: 20100920
  2. REMICADE [Suspect]
     Indication: PSORIATIC ARTHROPATHY
     Dosage: 400 MG Q 2 WEEKS (2 INFUSIONS) IV
     Route: 042
     Dates: start: 20101005

REACTIONS (1)
  - HODGKIN'S DISEASE [None]
